FAERS Safety Report 4318536-0 (Version None)
Quarter: 2004Q1

REPORT INFORMATION
  Report Type: 
  Country: None (occurrence: None)
  Receive Date: 20040315
  Receipt Date: 20040301
  Transmission Date: 20041129
  Serious: Yes (Death, Hospitalization)
  Sender: FDA-Public Use
  Company Number: 2004202494FR

PATIENT
  Age: 75 Year
  Sex: Male

DRUGS (9)
  1. CELEBREX [Suspect]
     Dosage: 200 MG, QD, ORAL
     Route: 048
     Dates: end: 20040129
  2. PAROXETINE HCL [Suspect]
     Dosage: 10 MG, QD, ORAL
     Route: 048
     Dates: end: 20040129
  3. KARDEGIC (ACETYLSALICYLATE LYSINE) [Suspect]
     Dosage: 300 MG, QD, ORAL
     Route: 048
     Dates: end: 20040129
  4. ACETAMINOPHEN [Concomitant]
  5. CYAMEMAZINE (CYAMEMAZINE) [Concomitant]
  6. DILTIAZEM [Concomitant]
  7. GINKGO BILOBA/HEPTAMINOL/TROXERUTINE [Concomitant]
  8. MACROGOL (MACROGOL) [Concomitant]
  9. FERROUS SULFATE TAB [Concomitant]

REACTIONS (15)
  - ACUTE PULMONARY OEDEMA [None]
  - ANAEMIA [None]
  - ATRIAL FIBRILLATION [None]
  - BUNDLE BRANCH BLOCK RIGHT [None]
  - CARDIOMEGALY [None]
  - DEPRESSED LEVEL OF CONSCIOUSNESS [None]
  - DRUG INTERACTION [None]
  - DUODENAL ULCER HAEMORRHAGE [None]
  - LIVEDO RETICULARIS [None]
  - METABOLIC ACIDOSIS [None]
  - MYOCARDIAL ISCHAEMIA [None]
  - OEDEMA PERIPHERAL [None]
  - PUPILLARY REFLEX IMPAIRED [None]
  - SHOCK HAEMORRHAGIC [None]
  - TACHYCARDIA [None]
